FAERS Safety Report 15905823 (Version 1)
Quarter: 2019Q1

REPORT INFORMATION
  Report Type: Spontaneous
  Country: US (occurrence: US)
  Receive Date: 20190204
  Receipt Date: 20190204
  Transmission Date: 20190417
  Serious: No
  Sender: FDA-Public Use
  Company Number: US-ENDO PHARMACEUTICALS INC-2018-012613

PATIENT
  Age: 62 Year
  Sex: Male

DRUGS (1)
  1. METHYLPREDNISOLONE. [Suspect]
     Active Substance: METHYLPREDNISOLONE
     Indication: EAR DISORDER
     Dosage: 1 DF, DAILY FOR SIX DAYS
     Route: 048
     Dates: start: 20171229, end: 20171231

REACTIONS (3)
  - Flatulence [Recovered/Resolved]
  - Diarrhoea [Recovered/Resolved]
  - Off label use [Recovered/Resolved]

NARRATIVE: CASE EVENT DATE: 20171229
